FAERS Safety Report 7243404-4 (Version None)
Quarter: 2011Q1

REPORT INFORMATION
  Report Type: 
  Country: None (occurrence: None)
  Receive Date: 20110125
  Receipt Date: 20110111
  Transmission Date: 20110831
  Serious: Yes (Death, Hospitalization, Other)
  Sender: FDA-Public Use
  Company Number: US-ELI_LILLY_AND_COMPANY-US201011004946

PATIENT
  Sex: Male

DRUGS (11)
  1. ALIMTA [Suspect]
     Indication: NON-SMALL CELL LUNG CANCER
     Dosage: 1000 UNK, UNKNOWN
     Route: 065
     Dates: start: 20101101, end: 20101101
  2. ALIMTA [Suspect]
     Dosage: UNK, UNKNOWN
     Route: 065
     Dates: start: 20101104
  3. ASPIRIN [Concomitant]
     Dosage: UNK, UNKNOWN
     Route: 065
  4. COMPAZINE [Concomitant]
     Dosage: UNK, UNKNOWN
     Route: 065
  5. COUMADIN [Concomitant]
     Dosage: UNK, UNKNOWN
     Route: 065
  6. VITAMIN B [Concomitant]
     Dosage: UNK, UNKNOWN
     Route: 065
  7. FOLIC ACID [Concomitant]
     Dosage: UNK, UNKNOWN
     Route: 065
  8. VITAMIN B-12 [Concomitant]
     Dosage: UNK, UNKNOWN
     Route: 065
  9. NIASPAN [Concomitant]
     Dosage: UNK, UNKNOWN
     Route: 065
  10. OXYCODONE [Concomitant]
     Dosage: UNK, UNKNOWN
     Route: 065
  11. OXYCONTIN [Concomitant]
     Dosage: UNK, UNKNOWN
     Route: 065

REACTIONS (7)
  - HYPOTENSION [None]
  - THROMBOCYTOPENIA [None]
  - INTERNATIONAL NORMALISED RATIO INCREASED [None]
  - DEHYDRATION [None]
  - SPUTUM CULTURE POSITIVE [None]
  - ANAEMIA [None]
  - ATRIAL FIBRILLATION [None]
